FAERS Safety Report 6491163-5 (Version None)
Quarter: 2009Q4

REPORT INFORMATION
  Report Type: 
  Country: None (occurrence: None)
  Receive Date: 20091211
  Receipt Date: 20091204
  Transmission Date: 20100525
  Serious: Yes (Hospitalization, Other)
  Sender: FDA-Public Use
  Company Number: GB-ABBOTT-04P-167-0272647-00

PATIENT
  Sex: Female
  Weight: 74 kg

DRUGS (16)
  1. HUMIRA [Suspect]
     Indication: RHEUMATOID ARTHRITIS
     Route: 058
     Dates: start: 20040517, end: 20040902
  2. CO-CODAMOL [Concomitant]
     Indication: RHEUMATOID ARTHRITIS
     Dosage: 30/500
     Dates: start: 20030627
  3. SINTHROME [Concomitant]
     Indication: ATRIAL FIBRILLATION
     Dates: start: 19890316
  4. DIGOXIN [Concomitant]
     Indication: ATRIAL FIBRILLATION
     Dates: start: 19890101
  5. FRUSEMIDE [Concomitant]
     Indication: MYOCARDIAL ISCHAEMIA
     Dates: start: 19890101
  6. DOTHIEPIN [Concomitant]
     Indication: ANXIETY
     Dates: start: 19870101
  7. DIAZEPAM [Concomitant]
     Indication: INSOMNIA
     Dates: start: 19870101
  8. METFORMIN HCL [Concomitant]
     Indication: DIABETES MELLITUS
     Dates: start: 20040401
  9. CALCICHEW [Concomitant]
     Indication: OSTEOPOROSIS
     Dates: start: 20030701
  10. METHOTREXATE [Concomitant]
     Indication: RHEUMATOID ARTHRITIS
     Dates: start: 20031103
  11. FOLIC ACID [Concomitant]
     Indication: VITAMIN SUPPLEMENTATION
     Dates: start: 20031103
  12. MIXTARD HUMAN 70/30 [Concomitant]
     Indication: DIABETES MELLITUS
  13. HUMIRA [Concomitant]
     Indication: RHEUMATOID ARTHRITIS
     Route: 058
     Dates: start: 20031211, end: 20040517
  14. ISONIAZID [Concomitant]
     Indication: ANTIBIOTIC PROPHYLAXIS
     Dates: start: 20030722, end: 20040422
  15. PYRIDOXINE [Concomitant]
     Indication: ANTIBIOTIC PROPHYLAXIS
     Dates: start: 20030722, end: 20040422
  16. GLICLAZIDE [Concomitant]
     Indication: DRUG USE FOR UNKNOWN INDICATION

REACTIONS (1)
  - EXTRAPULMONARY TUBERCULOSIS [None]
